FAERS Safety Report 17766955 (Version 1)
Quarter: 2020Q2

REPORT INFORMATION
  Report Type: Spontaneous
  Country: US (occurrence: US)
  Receive Date: 20200511
  Receipt Date: 20200511
  Transmission Date: 20200714
  Serious: Yes (Other)
  Sender: FDA-Public Use
  Company Number: US-ROCHE-2597889

PATIENT
  Sex: Male

DRUGS (2)
  1. ACTILYSE [Suspect]
     Active Substance: ALTEPLASE
     Indication: CEREBELLAR ARTERY OCCLUSION
     Dosage: 1 IN 1 ONCE
     Route: 042
  2. ACTILYSE [Suspect]
     Active Substance: ALTEPLASE
     Route: 042

REACTIONS (1)
  - Drug ineffective [Unknown]
